FAERS Safety Report 17212559 (Version 1)
Quarter: 2019Q4

REPORT INFORMATION
  Report Type: Spontaneous
  Country: US (occurrence: US)
  Receive Date: 20191205
  Receipt Date: 20191205
  Transmission Date: 20200122
  Serious: No
  Sender: FDA-Public Use
  Company Number: None

PATIENT
  Sex: Female

DRUGS (1)
  1. DALFAMPRIDINE ER 10MG AUROBINDO PHARMA [Suspect]
     Active Substance: DALFAMPRIDINE
     Indication: MULTIPLE SCLEROSIS
     Dosage: START DATE 26-DEC-2019?
     Route: 048
     Dates: start: 2019

REACTIONS (5)
  - Mobility decreased [None]
  - Muscle spasticity [None]
  - Paraesthesia [None]
  - Hypoaesthesia [None]
  - Fatigue [None]
